FAERS Safety Report 6925382-8 (Version None)
Quarter: 2010Q3

REPORT INFORMATION
  Report Type: 
  Country: None (occurrence: None)
  Receive Date: 20100816
  Receipt Date: 20100810
  Transmission Date: 20110219
  Serious: Yes (Death, Other)
  Sender: FDA-Public Use
  Company Number: JP-BAYER-201013804BYL

PATIENT
  Age: 64 Year
  Sex: Male
  Weight: 83 kg

DRUGS (10)
  1. NEXAVAR [Suspect]
     Indication: HEPATIC NEOPLASM MALIGNANT
     Dosage: TOTAL DAILY DOSE: 800 MG  UNIT DOSE: 200 MG
     Route: 048
     Dates: start: 20100428
  2. NEXAVAR [Suspect]
     Dosage: TOTAL DAILY DOSE: 400 MG  UNIT DOSE: 200 MG
     Route: 048
     Dates: start: 20100615, end: 20100707
  3. RINDERON [Concomitant]
     Dosage: UNIT DOSE: 0.5 MG
     Route: 048
     Dates: start: 20100428
  4. ACTOS [Concomitant]
     Dosage: UNIT DOSE: 15 MG
     Route: 048
  5. BLOPRESS [Concomitant]
     Dosage: UNIT DOSE: 4 MG
     Route: 048
     Dates: start: 20100428
  6. ADALAT CC [Concomitant]
     Dosage: UNIT DOSE: 20 MG
     Route: 048
     Dates: start: 20100428
  7. LOXONIN [Concomitant]
     Dosage: UNIT DOSE: 60 MG
     Route: 048
  8. LASIX [Concomitant]
     Dosage: UNIT DOSE: 20 MG
     Route: 048
     Dates: start: 20091001
  9. OXYCONTIN [Concomitant]
     Dosage: UNIT DOSE: 5 MG
     Route: 048
     Dates: start: 20091112
  10. ALDACTONE [Concomitant]
     Dosage: UNIT DOSE: 25 MG
     Route: 048
     Dates: start: 20091126

REACTIONS (5)
  - ALOPECIA [None]
  - HAEMORRHAGIC ASCITES [None]
  - HEPATIC FAILURE [None]
  - HEPATIC NEOPLASM MALIGNANT [None]
  - PALMAR-PLANTAR ERYTHRODYSAESTHESIA SYNDROME [None]
